FAERS Safety Report 23842034 (Version 1)
Quarter: 2024Q2

REPORT INFORMATION
  Report Type: Report from Study
  Country: ES (occurrence: ES)
  Receive Date: 20240510
  Receipt Date: 20240510
  Transmission Date: 20240715
  Serious: Yes (Hospitalization, Other)
  Sender: FDA-Public Use
  Company Number: None

PATIENT
  Age: 82 Year
  Sex: Male

DRUGS (3)
  1. DOXORUBICIN HYDROCHLORIDE [Suspect]
     Active Substance: DOXORUBICIN HYDROCHLORIDE
     Dosage: UNK
     Dates: start: 20220311, end: 20220516
  2. VINCRISTINE [Suspect]
     Active Substance: VINCRISTINE
     Dosage: UNK
     Dates: start: 20220311, end: 20220516
  3. CYCLOPHOSPHAMIDE [Suspect]
     Active Substance: CYCLOPHOSPHAMIDE
     Dosage: UNK
     Dates: start: 20220311, end: 20220516

REACTIONS (22)
  - Pancytopenia [Recovering/Resolving]
  - Febrile neutropenia [Recovering/Resolving]
  - Dysphagia [Recovering/Resolving]
  - Respiratory tract infection [Recovering/Resolving]
  - Mucosal inflammation [Recovering/Resolving]
  - Basophil percentage decreased [Unknown]
  - Blood fibrinogen increased [Unknown]
  - Eosinophil count decreased [Unknown]
  - Eosinophil percentage decreased [Unknown]
  - Haematocrit decreased [Unknown]
  - Haemoglobin decreased [Unknown]
  - International normalised ratio increased [Unknown]
  - Lymphocyte percentage decreased [Unknown]
  - Lymphocyte count decreased [Unknown]
  - Mean cell haemoglobin concentration decreased [Unknown]
  - Monocyte count decreased [Unknown]
  - Monocyte percentage decreased [Unknown]
  - Prothrombin level decreased [Unknown]
  - Prothrombin time prolonged [Unknown]
  - Prothrombin time ratio increased [Unknown]
  - Red blood cell count decreased [Unknown]
  - Red cell distribution width increased [Unknown]

NARRATIVE: CASE EVENT DATE: 20220525
